APPROVED DRUG PRODUCT: LEUCOVORIN CALCIUM
Active Ingredient: LEUCOVORIN CALCIUM
Strength: EQ 100MG BASE/VIAL
Dosage Form/Route: INJECTABLE;INJECTION
Application: A081224 | Product #001
Applicant: ELKINS SINN DIV AH ROBINS CO INC
Approved: Jun 3, 1994 | RLD: No | RS: No | Type: DISCN